FAERS Safety Report 7673226-1 (Version None)
Quarter: 2011Q3

REPORT INFORMATION
  Report Type: 
  Country: None (occurrence: None)
  Receive Date: 20110810
  Receipt Date: 20110808
  Transmission Date: 20111222
  Serious: Yes (Other)
  Sender: FDA-Public Use
  Company Number: US-SHIRE-ALL1-2011-02227

PATIENT
  Sex: Male
  Weight: 23.129 kg

DRUGS (3)
  1. NASONEX [Concomitant]
     Indication: RHINITIS ALLERGIC
     Dosage: UNK, UNKNOWN
     Route: 065
  2. IBUPROFEN [Concomitant]
     Indication: PYREXIA
     Dosage: UNK, UNKNOWN
     Route: 065
  3. INTUNIV [Suspect]
     Indication: ATTENTION DEFICIT/HYPERACTIVITY DISORDER
     Dosage: UNK, UNKNOWN
     Route: 048
     Dates: start: 20110309, end: 20110615

REACTIONS (1)
  - HALLUCINATION, AUDITORY [None]
